FAERS Safety Report 18103993 (Version 2)
Quarter: 2020Q3

REPORT INFORMATION
  Report Type: Other
  Country: US (occurrence: US)
  Receive Date: 20200803
  Receipt Date: 20200805
  Transmission Date: 20201103
  Serious: No
  Sender: FDA-Public Use
  Company Number: US-TOLMAR, INC.-20US022177

PATIENT
  Sex: Female

DRUGS (2)
  1. SALICYLIC ACID. [Concomitant]
     Active Substance: SALICYLIC ACID
     Indication: ACNE
     Dosage: UNK, QOD
     Route: 061
     Dates: start: 20200615
  2. ERYTHROMYCIN AND BENZOYL PEROXIDE 3% / 5% [Suspect]
     Active Substance: BENZOYL PEROXIDE\ERYTHROMYCIN
     Indication: ACNE
     Dosage: UNK, QOD
     Route: 061
     Dates: start: 20200615

REACTIONS (2)
  - Product physical consistency issue [Unknown]
  - Product administration error [Unknown]
